FAERS Safety Report 7985584-9 (Version None)
Quarter: 2011Q4

REPORT INFORMATION
  Report Type: 
  Country: None (occurrence: None)
  Receive Date: 20111216
  Receipt Date: 20111208
  Transmission Date: 20120403
  Serious: Yes (Other)
  Sender: FDA-Public Use
  Company Number: US-BRISTOL-MYERS SQUIBB COMPANY-16272510

PATIENT
  Sex: Female

DRUGS (3)
  1. ABILIFY [Interacting]
     Indication: AFFECTIVE DISORDER
     Dosage: UP TO 7MG
  2. ABILIFY [Interacting]
     Indication: ANXIETY
     Dosage: UP TO 7MG
  3. TAXOL [Suspect]

REACTIONS (2)
  - BREAST CANCER [None]
  - DRUG INTERACTION [None]
